FAERS Safety Report 22236375 (Version 1)
Quarter: 2023Q2

REPORT INFORMATION
  Report Type: Spontaneous
  Country: US (occurrence: None)
  Receive Date: 20230420
  Receipt Date: 20230420
  Transmission Date: 20230721
  Serious: No
  Sender: FDA-Public Use
  Company Number: US-ROCHE-3214220

PATIENT
  Sex: Male
  Weight: 104.42 kg

DRUGS (3)
  1. AVASTIN [Suspect]
     Active Substance: BEVACIZUMAB
     Indication: Neovascular age-related macular degeneration
     Dosage: EVERY 6 TO 8 WEEKS
     Route: 050
     Dates: start: 2017
  2. MELOXICAM [Concomitant]
     Active Substance: MELOXICAM
     Route: 048
     Dates: start: 202205
  3. ADVIL [Concomitant]
     Active Substance: IBUPROFEN
     Route: 048
     Dates: end: 202205

REACTIONS (2)
  - Intentional product use issue [Unknown]
  - No adverse event [Unknown]

NARRATIVE: CASE EVENT DATE: 20170101
